FAERS Safety Report 17201556 (Version 5)
Quarter: 2022Q3

REPORT INFORMATION
  Report Type: Report from Study
  Country: DE (occurrence: DE)
  Receive Date: 20191226
  Receipt Date: 20220901
  Transmission Date: 20221026
  Serious: Yes (Other)
  Sender: FDA-Public Use
  Company Number: DE-PFIZER INC-2019547425

PATIENT
  Sex: Female

DRUGS (9)
  1. INFLIXIMAB [Suspect]
     Active Substance: INFLIXIMAB
     Indication: Crohn^s disease
     Dosage: UNK
     Route: 065
  2. CIPROFLOXACIN [Suspect]
     Active Substance: CIPROFLOXACIN
     Indication: Clostridium difficile colitis
     Dosage: UNK
     Route: 065
  3. VANCOMYCIN [Suspect]
     Active Substance: VANCOMYCIN
     Indication: Clostridium difficile colitis
     Dosage: UNK
  4. AMOXICILLIN [Suspect]
     Active Substance: AMOXICILLIN
     Indication: Bacterial infection
     Dosage: UNK
     Route: 065
  5. CERTOLIZUMAB [Suspect]
     Active Substance: CERTOLIZUMAB
     Indication: Crohn^s disease
     Dosage: UNK
     Route: 065
  6. CLAVULANIC ACID [Suspect]
     Active Substance: CLAVULANIC ACID
     Indication: Bacterial infection
     Dosage: UNK
     Route: 065
  7. METRONIDAZOLE [Suspect]
     Active Substance: METRONIDAZOLE
     Indication: Clostridium difficile colitis
     Dosage: UNK
     Route: 065
  8. ACETAMINOPHEN [Suspect]
     Active Substance: ACETAMINOPHEN
     Indication: Pyrexia
     Dosage: UNK
     Route: 065
  9. PREDNISONE [Suspect]
     Active Substance: PREDNISONE
     Dosage: UNK
     Route: 065

REACTIONS (2)
  - Stillbirth [Unknown]
  - Crohn^s disease [Unknown]
